FAERS Safety Report 16844127 (Version 1)
Quarter: 2019Q4

REPORT INFORMATION
  Report Type: Spontaneous
  Country: US (occurrence: US)
  Receive Date: 20190923
  Receipt Date: 20190923
  Transmission Date: 20200122
  Serious: Yes (Disabling)
  Sender: FDA-Public Use
  Company Number: None

PATIENT
  Age: 31 Year
  Sex: Female
  Weight: 64.35 kg

DRUGS (2)
  1. MULTI VITAMIN [Concomitant]
     Active Substance: VITAMINS
  2. ISOTRETINOIN. [Suspect]
     Active Substance: ISOTRETINOIN
     Indication: ACNE
     Dosage: ?          QUANTITY:1 TABLET(S);?
     Route: 048
     Dates: start: 20131001, end: 20140401

REACTIONS (15)
  - Arthralgia [None]
  - Mobility decreased [None]
  - Rheumatoid arthritis [None]
  - Chest pain [None]
  - Bone erosion [None]
  - Emotional distress [None]
  - Anxiety [None]
  - Musculoskeletal pain [None]
  - Depression [None]
  - Back pain [None]
  - Pain in extremity [None]
  - Irritable bowel syndrome [None]
  - Impaired work ability [None]
  - Fatigue [None]
  - Loss of personal independence in daily activities [None]

NARRATIVE: CASE EVENT DATE: 20140715
